FAERS Safety Report 6880619-9 (Version None)
Quarter: 2010Q3

REPORT INFORMATION
  Report Type: 
  Country: None (occurrence: None)
  Receive Date: 20100727
  Receipt Date: 20100126
  Transmission Date: 20110219
  Serious: No
  Sender: FDA-Public Use
  Company Number: A0841498A

PATIENT
  Age: 51 Year
  Sex: Female

DRUGS (4)
  1. ZANTAC [Suspect]
     Dosage: 150MG PER DAY
     Route: 048
     Dates: start: 20091127, end: 20100105
  2. PROTONIX [Concomitant]
  3. AMBIEN [Concomitant]
  4. LEXAPRO [Concomitant]

REACTIONS (3)
  - ARTHRALGIA [None]
  - DRUG INEFFECTIVE [None]
  - MYALGIA [None]
